FAERS Safety Report 7932838-8 (Version None)
Quarter: 2011Q4

REPORT INFORMATION
  Report Type: 
  Country: None (occurrence: None)
  Receive Date: 20111122
  Receipt Date: 20111117
  Transmission Date: 20120403
  Serious: Yes (Other)
  Sender: FDA-Public Use
  Company Number: US-PFIZER INC-2011282121

PATIENT
  Sex: Female

DRUGS (4)
  1. PROGRAF [Suspect]
     Dosage: UNK
  2. PREDNISONE TAB [Suspect]
     Dosage: UNK
  3. ALENDRONATE SODIUM [Suspect]
     Dosage: UNK
  4. RAPAMUNE [Suspect]

REACTIONS (6)
  - SCLERODERMA [None]
  - BLOOD CHOLESTEROL INCREASED [None]
  - GASTROOESOPHAGEAL REFLUX DISEASE [None]
  - HEADACHE [None]
  - HYPERTENSION [None]
  - PAIN [None]
